FAERS Safety Report 4494390-1 (Version None)
Quarter: 2004Q4

REPORT INFORMATION
  Report Type: 
  Country: None (occurrence: None)
  Receive Date: 20041102
  Receipt Date: 20041020
  Transmission Date: 20050328
  Serious: Yes (Hospitalization)
  Sender: FDA-Public Use
  Company Number: CA_041007323

PATIENT
  Age: 97 Year
  Sex: Female

DRUGS (3)
  1. ZYPREXA [Suspect]
     Indication: SLEEP DISORDER
     Dosage: 7.5 MG AT BEDTIME
     Dates: start: 20041001
  2. HALDOL [Concomitant]
  3. SERAX [Concomitant]

REACTIONS (11)
  - ABASIA [None]
  - CONFUSIONAL STATE [None]
  - COORDINATION ABNORMAL [None]
  - DEPRESSION [None]
  - DRUG INTERACTION [None]
  - MEMORY IMPAIRMENT [None]
  - NEGATIVE THOUGHTS [None]
  - SOMNOLENCE [None]
  - SPEECH DISORDER [None]
  - SUICIDAL IDEATION [None]
  - WEIGHT DECREASED [None]
